FAERS Safety Report 7044376-8 (Version None)
Quarter: 2010Q4

REPORT INFORMATION
  Report Type: 
  Country: None (occurrence: None)
  Receive Date: 20101014
  Receipt Date: 20101001
  Transmission Date: 20110411
  Serious: Yes (Other)
  Sender: FDA-Public Use
  Company Number: US-BAYER-201026177NA

PATIENT
  Age: 58 Year
  Sex: Female

DRUGS (1)
  1. CLIMARA PRO [Suspect]
     Indication: VAGINAL HAEMORRHAGE
     Dosage: THE CONSUMER HAS NEVER HAD ANY PROBLEM UNTIL THE LAST PACK. DOSAGE 0.045 MG/0.015 MG /DAY
     Route: 062
     Dates: start: 20080901

REACTIONS (3)
  - AFFECTIVE DISORDER [None]
  - NIGHT SWEATS [None]
  - VAGINAL HAEMORRHAGE [None]
